FAERS Safety Report 6063558-5 (Version None)
Quarter: 2009Q1

REPORT INFORMATION
  Report Type: 
  Country: None (occurrence: None)
  Receive Date: 20090129
  Receipt Date: 20090116
  Transmission Date: 20090719
  Serious: Yes (Death, Hospitalization)
  Sender: FDA-Public Use
  Company Number: KV200900102

PATIENT
  Age: 85 Year
  Sex: Female

DRUGS (1)
  1. ISOSORBIDE MONONITRATE [Suspect]
     Indication: CARDIAC DISORDER
     Dosage: 30 MG, BID, ORAL
     Route: 048
     Dates: end: 20081001

REACTIONS (4)
  - ABDOMINAL PAIN [None]
  - COLITIS [None]
  - RENAL FAILURE [None]
  - VOMITING [None]
